FAERS Safety Report 6870273-4 (Version None)
Quarter: 2010Q3

REPORT INFORMATION
  Report Type: 
  Country: None (occurrence: None)
  Receive Date: 20100723
  Receipt Date: 20100713
  Transmission Date: 20110219
  Serious: No
  Sender: FDA-Public Use
  Company Number: US-BIOGENIDEC-2010BI019338

PATIENT
  Age: 56 Year
  Sex: Female

DRUGS (8)
  1. TYSABRI [Suspect]
     Indication: MULTIPLE SCLEROSIS
     Route: 042
     Dates: start: 20071214, end: 20080410
  2. TYSABRI [Suspect]
     Route: 042
     Dates: start: 20080609
  3. SINGULAIR [Concomitant]
     Indication: SEASONAL ALLERGY
     Dates: start: 19900101
  4. SINUCORT NASAL SPRAY [NOS] [Concomitant]
     Indication: SEASONAL ALLERGY
     Dates: start: 19900101
  5. CLARITIN [Concomitant]
     Indication: SEASONAL ALLERGY
     Dates: start: 19900101
  6. ZYRTEC [Concomitant]
     Indication: SEASONAL ALLERGY
     Dates: start: 19900101
  7. OCEAN SALINE NASAL SPRAY [Concomitant]
     Indication: SEASONAL ALLERGY
     Dates: start: 19800101
  8. FLEXERIL [Concomitant]
     Indication: MUSCLE SPASTICITY
     Dates: start: 19950101

REACTIONS (8)
  - ABDOMINAL PAIN UPPER [None]
  - ANXIETY [None]
  - BLOOD CHOLESTEROL INCREASED [None]
  - FATIGUE [None]
  - INFLUENZA [None]
  - MULTIPLE SCLEROSIS RELAPSE [None]
  - OEDEMA PERIPHERAL [None]
  - PYREXIA [None]
